FAERS Safety Report 15290885 (Version 1)
Quarter: 2018Q3

REPORT INFORMATION
  Report Type: Spontaneous
  Country: US (occurrence: US)
  Receive Date: 20180817
  Receipt Date: 20180817
  Transmission Date: 20181010
  Serious: No
  Sender: FDA-Public Use
  Company Number: US-BAYER-2018-150013

PATIENT
  Age: 64 Year
  Sex: Female
  Weight: 73 kg

DRUGS (2)
  1. CLARITIN [Suspect]
     Active Substance: LORATADINE
     Indication: BONE PAIN
     Dosage: 1 UNK, UNK
     Route: 048
  2. PEGFILGRASTIM [Concomitant]
     Active Substance: PEGFILGRASTIM

REACTIONS (2)
  - Off label use [Unknown]
  - Product use in unapproved indication [Unknown]
